FAERS Safety Report 9229649 (Version 3)
Quarter: 2013Q2

REPORT INFORMATION
  Report Type: Spontaneous
  Country: CA (occurrence: CA)
  Receive Date: 20130415
  Receipt Date: 20130530
  Transmission Date: 20140414
  Serious: Yes (Other)
  Sender: FDA-Public Use
  Company Number: CA-AMGEN-CANSP2013024994

PATIENT
  Age: 58 Year
  Sex: Male

DRUGS (9)
  1. ENBREL [Suspect]
     Indication: RHEUMATOID ARTHRITIS
     Dosage: 50 MG, QWK
     Route: 058
     Dates: start: 200606
  2. HYZAAR [Concomitant]
     Indication: BLOOD PRESSURE INCREASED
     Dosage: 50/12.5, QD
  3. NORVASC [Concomitant]
     Indication: BLOOD PRESSURE INCREASED
     Dosage: 10 UNK, QD
  4. LIPITOR [Concomitant]
     Indication: BLOOD CHOLESTEROL INCREASED
     Dosage: 10 UNK, QD
  5. PREDNISONE [Concomitant]
     Dosage: UNK
  6. FOLIC ACID [Concomitant]
     Dosage: 5 UNK, QD
  7. ASA [Concomitant]
     Dosage: UNK
  8. WELLBUTRIN [Concomitant]
     Indication: DEPRESSION
     Dosage: 300 UNK, QD
  9. IMMUNOSUPPRESSANTS [Concomitant]
     Indication: ARTHRITIS
     Dosage: UNK

REACTIONS (9)
  - Bladder cancer [Recovered/Resolved]
  - Transitional cell carcinoma [Recovered/Resolved]
  - Renal cyst [Unknown]
  - Cervical vertebral fracture [Unknown]
  - Discomfort [Unknown]
  - Pain [Unknown]
  - Road traffic accident [Unknown]
  - Benign prostatic hyperplasia [Unknown]
  - Pollakiuria [Unknown]
